FAERS Safety Report 7734685-9 (Version None)
Quarter: 2011Q3

REPORT INFORMATION
  Report Type: 
  Country: None (occurrence: None)
  Receive Date: 20110907
  Receipt Date: 20110823
  Transmission Date: 20111222
  Serious: No
  Sender: FDA-Public Use
  Company Number: CA-ELI_LILLY_AND_COMPANY-CA201108006930

PATIENT
  Sex: Female

DRUGS (4)
  1. ZYPREXA [Suspect]
     Dosage: 2.5 MG, UNKNOWN
  2. ZYPREXA [Suspect]
     Dosage: 7.5 MG, UNKNOWN
  3. ZYPREXA [Suspect]
     Dosage: 10 MG, UNKNOWN
  4. ZYPREXA [Suspect]
     Dosage: 5 MG, UNKNOWN

REACTIONS (3)
  - NEUTROPHIL COUNT INCREASED [None]
  - DIABETES MELLITUS [None]
  - ASPARTATE AMINOTRANSFERASE INCREASED [None]
